FAERS Safety Report 5152016-8 (Version None)
Quarter: 2006Q4

REPORT INFORMATION
  Report Type: 
  Country: None (occurrence: None)
  Receive Date: 20061116
  Receipt Date: 20061106
  Transmission Date: 20070319
  Serious: Yes (Hospitalization)
  Sender: FDA-Public Use
  Company Number: AU-JNJFOC-20061101924

PATIENT
  Age: 83 Year
  Sex: Male

DRUGS (3)
  1. RISPERDAL [Suspect]
     Indication: ANXIETY DISORDER
  2. VERAPAMIL HYDROCHLORIDE [Concomitant]
  3. CITALOPRAM HYDROBROMIDE [Concomitant]
     Indication: DEPRESSION

REACTIONS (6)
  - BALANCE DISORDER [None]
  - CIRCULATORY COLLAPSE [None]
  - CONFUSIONAL STATE [None]
  - DYSARTHRIA [None]
  - EXTRAPYRAMIDAL DISORDER [None]
  - HYPOTONIA [None]
